FAERS Safety Report 13581235 (Version 2)
Quarter: 2017Q3

REPORT INFORMATION
  Report Type: Spontaneous
  Country: FR (occurrence: FR)
  Receive Date: 20170525
  Receipt Date: 20170801
  Transmission Date: 20171127
  Serious: Yes (Disabling, Other)
  Sender: FDA-Public Use
  Company Number: FR-ACORDA-ACO_138089_2017

PATIENT
  Age: 76 Year
  Sex: Female

DRUGS (3)
  1. DOLIPRANE [Concomitant]
     Active Substance: ACETAMINOPHEN
     Indication: PRODUCT USED FOR UNKNOWN INDICATION
     Dosage: UNK
     Route: 065
  2. QUTENZA [Suspect]
     Active Substance: CAPSAICIN
     Indication: COMPLEX REGIONAL PAIN SYNDROME
     Dosage: 1 PLASTER LOCATED ON THE RIGHT FOOT^S TOE
     Route: 003
     Dates: start: 20170504, end: 20170504
  3. DAFALGAN [Concomitant]
     Active Substance: ACETAMINOPHEN
     Indication: PRODUCT USED FOR UNKNOWN INDICATION
     Route: 065

REACTIONS (3)
  - Onychomadesis [Recovering/Resolving]
  - Disability [Unknown]
  - Application site burn [Recovering/Resolving]

NARRATIVE: CASE EVENT DATE: 20170504
